FAERS Safety Report 23493330 (Version 2)
Quarter: 2024Q1

REPORT INFORMATION
  Report Type: Report from Study
  Country: CO (occurrence: CO)
  Receive Date: 20240207
  Receipt Date: 20240311
  Transmission Date: 20240410
  Serious: Yes (Hospitalization)
  Sender: FDA-Public Use
  Company Number: CO-Eisai-EC-2024-158547

PATIENT
  Age: 48 Year
  Sex: Male
  Weight: 78.0 kg

DRUGS (1)
  1. LENVIMA [Suspect]
     Active Substance: LENVATINIB
     Indication: Thyroid cancer
     Route: 048
     Dates: start: 20230601, end: 20240115

REACTIONS (1)
  - Tracheal fistula [Recovering/Resolving]

NARRATIVE: CASE EVENT DATE: 20240117
